FAERS Safety Report 6426962-9 (Version None)
Quarter: 2009Q4

REPORT INFORMATION
  Report Type: 
  Country: None (occurrence: None)
  Receive Date: 20091103
  Receipt Date: 20091103
  Transmission Date: 20100525
  Serious: Yes (Hospitalization)
  Sender: FDA-Public Use
  Company Number: None

PATIENT
  Sex: Female

DRUGS (1)
  1. OXCARBAZEPINE [Suspect]
     Indication: DEPRESSION
     Dosage: DOSE UNKNOWN 047

REACTIONS (6)
  - BALANCE DISORDER [None]
  - CAROTID ARTERY OCCLUSION [None]
  - RASH [None]
  - VERTIGO [None]
  - VISION BLURRED [None]
  - WEIGHT INCREASED [None]
